FAERS Safety Report 10080077 (Version 1)
Quarter: 2014Q2

REPORT INFORMATION
  Report Type: Spontaneous
  Country: FR (occurrence: FR)
  Receive Date: 20140415
  Receipt Date: 20140415
  Transmission Date: 20141212
  Serious: Yes (Other)
  Sender: FDA-Public Use
  Company Number: FR-B.I. PHARMACEUTICALS,INC./RIDGEFIELD-2014-BI-16417FF

PATIENT
  Sex: Female

DRUGS (6)
  1. VIRAMUNE [Suspect]
     Indication: HIV INFECTION CDC CATEGORY C3
     Dosage: 400 MG
     Route: 048
     Dates: start: 20070427
  2. METHADONE [Suspect]
     Indication: PRODUCT USED FOR UNKNOWN INDICATION
     Route: 048
     Dates: start: 2009
  3. TRUVADA 200MG/245MG [Concomitant]
     Indication: HIV INFECTION CDC CATEGORY C3
     Dosage: DOSE PER APPLICATION: 200MG/245MG
     Route: 048
     Dates: start: 20070427
  4. IMOVANE 7.5MG [Concomitant]
     Dosage: 7.5 MG
     Route: 048
  5. ATARAX 25MG [Concomitant]
     Dosage: 50 MG
     Route: 048
  6. SEROPLEX 10MG [Concomitant]
     Dosage: 10 MG
     Route: 065

REACTIONS (1)
  - Drug ineffective [Not Recovered/Not Resolved]
